FAERS Safety Report 16892758 (Version 2)
Quarter: 2019Q4

REPORT INFORMATION
  Report Type: Spontaneous
  Country: US (occurrence: US)
  Receive Date: 20191007
  Receipt Date: 20191112
  Transmission Date: 20200122
  Serious: No
  Sender: FDA-Public Use
  Company Number: US-VIFOR (INTERNATIONAL) INC.-VIT-2019-08900

PATIENT
  Sex: Male

DRUGS (3)
  1. VELTASSA [Suspect]
     Active Substance: PATIROMER
     Indication: HYPERKALAEMIA
     Route: 048
  2. VELTASSA [Suspect]
     Active Substance: PATIROMER
     Route: 048
     Dates: start: 20191003
  3. VELTASSA [Suspect]
     Active Substance: PATIROMER
     Dosage: 8.4 GRAM, 1/2 PACKET EVERY OTHER DAY
     Route: 048
     Dates: start: 2019

REACTIONS (4)
  - Headache [Unknown]
  - Off label use [Unknown]
  - Dizziness [Unknown]
  - Product dose omission [Unknown]

NARRATIVE: CASE EVENT DATE: 2019
